FAERS Safety Report 5511186-X (Version None)
Quarter: 2007Q4

REPORT INFORMATION
  Report Type: 
  Country: None (occurrence: None)
  Receive Date: 20071109
  Receipt Date: 20071101
  Transmission Date: 20080405
  Serious: Yes (Other)
  Sender: FDA-Public Use
  Company Number: CA-ELI_LILLY_AND_COMPANY-CA200710007667

PATIENT
  Age: 5 Day
  Sex: Female
  Weight: 2.96 kg

DRUGS (8)
  1. XIGRIS [Suspect]
     Indication: SEPTIC SHOCK
     Dosage: UNK, UNK
     Route: 042
  2. VASOPRESSIN [Concomitant]
     Indication: SEPTIC SHOCK
     Dosage: UNK, OTHER
  3. EPINEPHRINE [Concomitant]
     Indication: SEPTIC SHOCK
     Dosage: UNK, OTHER
     Route: 042
  4. DOPAMINE HCL [Concomitant]
     Indication: SEPTIC SHOCK
  5. FRESH FROZEN PLASMA [Concomitant]
     Indication: DISSEMINATED INTRAVASCULAR COAGULATION
  6. VITAMIN K [Concomitant]
     Indication: DISSEMINATED INTRAVASCULAR COAGULATION
  7. HYPNOTICS AND SEDATIVES [Concomitant]
  8. OXYGEN [Concomitant]

REACTIONS (1)
  - THROMBOCYTOPENIA NEONATAL [None]
